FAERS Safety Report 7457048-2 (Version None)
Quarter: 2011Q1

REPORT INFORMATION
  Report Type: 
  Country: None (occurrence: None)
  Receive Date: 20110302
  Receipt Date: 20101215
  Transmission Date: 20110831
  Serious: No
  Sender: FDA-Public Use
  Company Number: 023831

PATIENT
  Sex: Female
  Weight: 60 kg

DRUGS (1)
  1. CIMZIA [Suspect]
     Indication: CROHN'S DISEASE
     Dosage: (400 MG 1X/2 WEEKS SUBCUTANEOUS)
     Route: 058
     Dates: start: 20101129

REACTIONS (5)
  - UNEVALUABLE EVENT [None]
  - INJECTION SITE ERYTHEMA [None]
  - NASAL CONGESTION [None]
  - INJECTION SITE PAIN [None]
  - RHINORRHOEA [None]
